FAERS Safety Report 4958673-0 (Version None)
Quarter: 2006Q1

REPORT INFORMATION
  Report Type: 
  Country: None (occurrence: None)
  Receive Date: 20060330
  Receipt Date: 20060208
  Transmission Date: 20060701
  Serious: Yes (Other)
  Sender: FDA-Public Use
  Company Number: GB-MERCK-0602GBR00063

PATIENT
  Age: 80 Year
  Sex: Female

DRUGS (4)
  1. ZOCOR [Suspect]
     Route: 048
     Dates: start: 19960101, end: 20010101
  2. ZOCOR [Suspect]
     Route: 048
     Dates: start: 20010101
  3. ZOCOR [Suspect]
     Route: 048
     Dates: end: 20060301
  4. DIPYRIDAMOLE [Concomitant]
     Route: 048

REACTIONS (2)
  - BURNING SENSATION [None]
  - CEREBROVASCULAR ACCIDENT [None]
